FAERS Safety Report 20313927 (Version 1)
Quarter: 2022Q1

REPORT INFORMATION
  Report Type: Spontaneous
  Country: US (occurrence: US)
  Receive Date: 20220109
  Receipt Date: 20220109
  Transmission Date: 20220424
  Serious: No
  Sender: FDA-Public Use
  Company Number: US-SA-SAC20220103000067

PATIENT
  Age: 65 Year
  Sex: Female

DRUGS (12)
  1. DUPIXENT [Suspect]
     Active Substance: DUPILUMAB
     Indication: Asthma
     Dosage: 300 MG, QOW
     Route: 058
  2. BACLOFEN [Concomitant]
     Active Substance: BACLOFEN
  3. CEVIMELINE [Concomitant]
     Active Substance: CEVIMELINE
  4. LYRICA [Concomitant]
     Active Substance: PREGABALIN
  5. PRAVASTATIN [Concomitant]
     Active Substance: PRAVASTATIN
     Dosage: 20MG
  6. SYNTHROID [Concomitant]
     Active Substance: LEVOTHYROXINE SODIUM
  7. TIZANIDINE [Concomitant]
     Active Substance: TIZANIDINE
     Dosage: 2MG
  8. TOLTERODINE [Concomitant]
     Active Substance: TOLTERODINE
  9. ZOLOFT [Concomitant]
     Active Substance: SERTRALINE HYDROCHLORIDE
     Dosage: 50MG
  10. CELEBREX [Concomitant]
     Active Substance: CELECOXIB
  11. CEVIMELINE [Concomitant]
     Active Substance: CEVIMELINE
  12. PRAVASTATIN [Concomitant]
     Active Substance: PRAVASTATIN
     Dosage: 20 MG

REACTIONS (3)
  - Impaired quality of life [Unknown]
  - Dermatitis atopic [Unknown]
  - Product use issue [Unknown]
